FAERS Safety Report 5579878-4 (Version None)
Quarter: 2008Q1

REPORT INFORMATION
  Report Type: 
  Country: None (occurrence: None)
  Receive Date: 20080102
  Receipt Date: 20071225
  Transmission Date: 20080703
  Serious: Yes (Hospitalization)
  Sender: FDA-Public Use
  Company Number: JP-MERCK-0710USA05744

PATIENT
  Age: 21 Year
  Sex: Female

DRUGS (3)
  1. PEPCID [Suspect]
     Indication: GASTRITIS PROPHYLAXIS
     Route: 048
     Dates: start: 20070505, end: 20071019
  2. TEGRETOL [Suspect]
     Indication: EPILEPSY
     Route: 048
     Dates: start: 20070508, end: 20071019
  3. GLYSENNID [Concomitant]
     Route: 048
     Dates: start: 20070426

REACTIONS (2)
  - ALOPECIA [None]
  - INTERSTITIAL LUNG DISEASE [None]
